FAERS Safety Report 11416602 (Version 6)
Quarter: 2016Q4

REPORT INFORMATION
  Report Type: Report from Study
  Country: KR (occurrence: KR)
  Receive Date: 20150825
  Receipt Date: 20161006
  Transmission Date: 20170206
  Serious: Yes (Hospitalization, Other)
  Sender: FDA-Public Use
  Company Number: KR-EISAI MEDICAL RESEARCH-EC-2015-007715

PATIENT
  Age: 75 Year
  Sex: Male
  Weight: 67 kg

DRUGS (14)
  1. DILATREND [Concomitant]
     Active Substance: CARVEDILOL
  2. TRIDOL [Concomitant]
     Active Substance: TRAMADOL HYDROCHLORIDE
  3. PLAVITOR [Concomitant]
  4. ATACAND PLUS [Concomitant]
     Active Substance: CANDESARTAN CILEXETIL\HYDROCHLOROTHIAZIDE
  5. CALTEO [Concomitant]
  6. DIOVAN [Concomitant]
     Active Substance: VALSARTAN
  7. CRESTOR [Concomitant]
     Active Substance: ROSUVASTATIN CALCIUM
  8. LENVATINIB [Suspect]
     Active Substance: LENVATINIB
     Indication: PAPILLARY THYROID CANCER
     Route: 048
     Dates: start: 20150527, end: 20150615
  9. LENVATINIB [Suspect]
     Active Substance: LENVATINIB
     Route: 048
     Dates: start: 20150730, end: 20150730
  10. LENVATINIB [Suspect]
     Active Substance: LENVATINIB
     Route: 048
     Dates: start: 20151001, end: 20151015
  11. DILATREND [Concomitant]
     Active Substance: CARVEDILOL
  12. NORVASC [Concomitant]
     Active Substance: AMLODIPINE BESYLATE
  13. SYNTHROID [Concomitant]
     Active Substance: LEVOTHYROXINE SODIUM
  14. LENVATINIB [Suspect]
     Active Substance: LENVATINIB
     Route: 048
     Dates: start: 20151124, end: 20160819

REACTIONS (4)
  - Chest discomfort [Recovered/Resolved]
  - Hypertension [Recovered/Resolved]
  - Dyspnoea [Not Recovered/Not Resolved]
  - Pleural effusion [Recovered/Resolved with Sequelae]

NARRATIVE: CASE EVENT DATE: 20150615
